FAERS Safety Report 18077478 (Version 1)
Quarter: 2020Q3

REPORT INFORMATION
  Report Type: Spontaneous
  Country: CH (occurrence: CH)
  Receive Date: 20200728
  Receipt Date: 20200728
  Transmission Date: 20201103
  Serious: Yes (Other)
  Sender: FDA-Public Use
  Company Number: CH-ALKEM LABORATORIES LIMITED-CH-ALKEM-2020-00073

PATIENT
  Age: 16 Year
  Sex: Male

DRUGS (1)
  1. CEFUROXIME AXETIL. [Suspect]
     Active Substance: CEFUROXIME AXETIL
     Indication: TONSILLITIS
     Dosage: UNK
     Route: 065
     Dates: start: 201507, end: 2015

REACTIONS (2)
  - Drug-induced liver injury [Unknown]
  - Cholestatic liver injury [Unknown]

NARRATIVE: CASE EVENT DATE: 2015
